FAERS Safety Report 15805435 (Version 1)
Quarter: 2019Q1

REPORT INFORMATION
  Report Type: Spontaneous
  Country: IT (occurrence: IT)
  Receive Date: 20190110
  Receipt Date: 20190110
  Transmission Date: 20190417
  Serious: Yes (Congenital Anomaly)
  Sender: FDA-Public Use
  Company Number: IT-AUROBINDO-AUR-APL-2018-063950

PATIENT

DRUGS (2)
  1. ACICLOVIR [Suspect]
     Active Substance: ACYCLOVIR
     Indication: HERPES SIMPLEX
     Dosage: UNK
     Route: 064
  2. ACICLOVIR [Suspect]
     Active Substance: ACYCLOVIR
     Dosage: UNK
     Route: 064

REACTIONS (7)
  - Herpes simplex [Unknown]
  - Rash vesicular [Unknown]
  - Scar [Unknown]
  - Dermatosis [Unknown]
  - Skin lesion [Unknown]
  - Skin erosion [Unknown]
  - Foetal exposure during pregnancy [Unknown]
